FAERS Safety Report 24113094 (Version 2)
Quarter: 2024Q3

REPORT INFORMATION
  Report Type: Spontaneous
  Country: SE (occurrence: SE)
  Receive Date: 20240719
  Receipt Date: 20240726
  Transmission Date: 20241017
  Serious: Yes (Disabling)
  Sender: ORGANON
  Company Number: None

PATIENT
  Age: 24 Year
  Sex: Female
  Weight: 60 kg

DRUGS (11)
  1. ELOCON [Suspect]
     Active Substance: MOMETASONE FUROATE
     Indication: Dermatitis atopic
     Dosage: ACCORDING TO THE LUBRICATION SCHEDULE IF NECESSARY
     Route: 003
     Dates: start: 19961201, end: 20240620
  2. LOCOID LIPOCREAM [Suspect]
     Active Substance: HYDROCORTISONE BUTYRATE
     Indication: Dermatitis atopic
     Dosage: ACCORDING TO THE LUBRICATION SCHEDULE IF NECESSARY
     Route: 003
     Dates: start: 19961201, end: 20240520
  3. MOMETASONE FUROATE [Suspect]
     Active Substance: MOMETASONE FUROATE
     Indication: Erythema multiforme
     Dosage: TID THE WHOLE BODY, 3 TIMES/DAY FOR 2 (?) WEEKS, AND THEN POSSIBLY ONCE A WEEK IF NECESSARY
     Route: 003
     Dates: start: 20210801, end: 20240620
  4. BETAMETHASONE [Suspect]
     Active Substance: BETAMETHASONE\BETAMETHASONE DIPROPIONATE
     Indication: Dermatitis atopic
     Dosage: PRN ACCORDING TO THE LUBRICATION SCHEDULE IF NECESSARY
     Route: 003
     Dates: start: 20210621
  5. MICROCID [HYDROGEN PEROXIDE] [Concomitant]
     Dosage: BID
     Route: 003
     Dates: start: 20210520, end: 20240330
  6. HYDROCORTISONE [Concomitant]
     Active Substance: HYDROCORTISONE\HYDROCORTISONE ACETATE
     Dosage: (STRENGTH: 10 MILLIGRAM PER GRAM (MG/G)1 IF NECESSARY
     Route: 003
     Dates: start: 19961201, end: 20240101
  7. PROTOPIC [Concomitant]
     Active Substance: TACROLIMUS
     Dosage: BID IF NECESSARY
     Route: 003
     Dates: start: 20200601, end: 20200801
  8. ZIPZOC [Concomitant]
     Dosage: PRN AS REQUIRED (IN THE EVENT OF UNSATISFACTORY EFFECT OF CORTISONE)
     Route: 003
     Dates: start: 20240201, end: 20240208
  9. PHENOXYMETHYLPENICILLIN CALCIUM [Concomitant]
     Active Substance: PHENOXYMETHYLPENICILLIN CALCIUM
     Dosage: 3 DF, QD (3 TABLETS A DAY FOR 7 DAYS TO COMBAT SKIN INFECTION (UNCONFIRMED))
     Route: 003
     Dates: start: 20230912, end: 20230919
  10. UREA [Concomitant]
     Active Substance: UREA
     Dosage: 2 TIMES/DAY AND AFTER CONTACT WITH WATER
     Route: 003
     Dates: start: 19961201, end: 20240620
  11. FUSIDIC ACID [Concomitant]
     Active Substance: FUSIDIC ACID
     Dosage: 1 DF 1 APPLICATION 2-3 TIMES PER DAY FOR 7 DAYS. EXTEND IF NECESSAR
     Route: 003
     Dates: start: 20230912, end: 20230919

REACTIONS (2)
  - Impaired healing [Recovering/Resolving]
  - Topical steroid withdrawal reaction [Recovering/Resolving]

NARRATIVE: CASE EVENT DATE: 20200501
